FAERS Safety Report 10667345 (Version 3)
Quarter: 2015Q1

REPORT INFORMATION
  Report Type: Spontaneous
  Country: CN (occurrence: CN)
  Receive Date: 20141222
  Receipt Date: 20150215
  Transmission Date: 20150720
  Serious: Yes (Hospitalization)
  Sender: FDA-Public Use
  Company Number: PHHY2014CN165248

PATIENT
  Age: 63 Year
  Sex: Female
  Weight: 53 kg

DRUGS (4)
  1. CALCIUM GLUCONATE. [Concomitant]
     Active Substance: CALCIUM GLUCONATE
     Indication: OSTEOPOROSIS
     Dosage: 20 ML, QD
     Route: 042
     Dates: start: 20141201, end: 20141208
  2. CALCIUM GLUCONATE. [Concomitant]
     Active Substance: CALCIUM GLUCONATE
     Indication: OSTEOARTHRITIS
  3. ACLASTA [Suspect]
     Active Substance: ZOLEDRONIC ACID
     Indication: OSTEOPOROSIS
     Dosage: 5 MG/100ML
     Route: 042
     Dates: start: 20141208
  4. ACLASTA [Suspect]
     Active Substance: ZOLEDRONIC ACID
     Indication: OSTEOARTHRITIS

REACTIONS (9)
  - Haematuria [Unknown]
  - Renal impairment [Recovering/Resolving]
  - Generalised oedema [Unknown]
  - Polyuria [Unknown]
  - Proteinuria [Recovered/Resolved]
  - Chest pain [Unknown]
  - Cardioactive drug level above therapeutic [Unknown]
  - Product use issue [Unknown]
  - Oliguria [Unknown]

NARRATIVE: CASE EVENT DATE: 20141210
